FAERS Safety Report 6272393-4 (Version None)
Quarter: 2009Q3

REPORT INFORMATION
  Report Type: 
  Country: None (occurrence: None)
  Receive Date: 20090717
  Receipt Date: 20090709
  Transmission Date: 20100115
  Serious: Yes (Hospitalization)
  Sender: FDA-Public Use
  Company Number: JP-MERCK-0907USA01854

PATIENT
  Age: 60 Year
  Sex: Female

DRUGS (12)
  1. FOSAMAX [Suspect]
     Indication: OSTEOPOROSIS
     Route: 048
     Dates: start: 20090514, end: 20090627
  2. ASPIRIN [Suspect]
     Route: 065
  3. PREDNISOLONE [Suspect]
     Route: 065
  4. HEPARIN SODIUM [Suspect]
     Route: 065
  5. ONEALFA [Concomitant]
     Route: 048
  6. MUCOSTA [Concomitant]
     Route: 065
  7. TAKEPRON [Concomitant]
     Route: 065
  8. GLAKAY [Concomitant]
     Route: 065
  9. LIPITOR [Concomitant]
     Route: 065
  10. LASIX [Concomitant]
     Route: 065
  11. CALTAN [Concomitant]
     Route: 065
  12. TANATRIL [Concomitant]
     Route: 065

REACTIONS (1)
  - HAEMATOMA [None]
